FAERS Safety Report 24104813 (Version 1)
Quarter: 2024Q3

REPORT INFORMATION
  Report Type: Spontaneous
  Country: US (occurrence: None)
  Receive Date: 20240716
  Receipt Date: 20240716
  Transmission Date: 20241017
  Serious: Yes (Other)
  Sender: Public
  Company Number: None

PATIENT
  Age: 89 Year
  Sex: Male
  Weight: 78.75 kg

DRUGS (8)
  1. CIPROFLOXACIN [Suspect]
     Active Substance: CIPROFLOXACIN
     Indication: Localised infection
     Dosage: 1 TABLET TWICE A DAY ORAL
     Route: 048
     Dates: start: 20240708, end: 20240711
  2. CLINDAMYCIN [Suspect]
     Active Substance: CLINDAMYCIN
  3. Gabapinton [Concomitant]
  4. NAPROXEN [Concomitant]
     Active Substance: NAPROXEN
  5. EQUATE SLEEP AID [Concomitant]
     Active Substance: DOXYLAMINE SUCCINATE
  6. DIETARY SUPPLEMENT [Concomitant]
     Active Substance: DIETARY SUPPLEMENT
  7. VITAMIN D3 [Concomitant]
     Active Substance: CHOLECALCIFEROL
  8. IBUPROFEN [Concomitant]
     Active Substance: IBUPROFEN

REACTIONS (5)
  - Asthenia [None]
  - Pain in extremity [None]
  - Pain in extremity [None]
  - Peripheral swelling [None]
  - Therapy cessation [None]

NARRATIVE: CASE EVENT DATE: 20240711
